FAERS Safety Report 20898333 (Version 1)
Quarter: 2022Q2

REPORT INFORMATION
  Report Type: Spontaneous
  Country: NO (occurrence: NO)
  Receive Date: 20220531
  Receipt Date: 20220531
  Transmission Date: 20220721
  Serious: Yes (Hospitalization, Other)
  Sender: FDA-Public Use
  Company Number: None

PATIENT
  Age: 42 Year
  Sex: Female
  Weight: 90 kg

DRUGS (3)
  1. TECFIDERA [Suspect]
     Active Substance: DIMETHYL FUMARATE
     Indication: Multiple sclerosis
     Route: 048
     Dates: start: 201909, end: 201910
  2. CENTYL MITE MED KALIUMKLORID [Concomitant]
     Indication: Hypertension
     Route: 048
     Dates: start: 2008
  3. ZYRTEC [Concomitant]
     Active Substance: CETIRIZINE HYDROCHLORIDE
     Indication: Hypersensitivity
     Route: 048
     Dates: start: 1998

REACTIONS (4)
  - Diverticulum [Recovered/Resolved with Sequelae]
  - Diverticulitis [Unknown]
  - Feeling cold [Unknown]
  - Abdominal pain [Unknown]
